FAERS Safety Report 8538853-8 (Version None)
Quarter: 2012Q3

REPORT INFORMATION
  Report Type: 
  Country: None (occurrence: None)
  Receive Date: 20120726
  Receipt Date: 20120104
  Transmission Date: 20120928
  Serious: No
  Sender: FDA-Public Use
  Company Number: US-009507513-1207USA002805

PATIENT

DRUGS (2)
  1. CLARITIN-D 24 HOUR [Suspect]
     Indication: MEDICAL OBSERVATION
  2. CLARITIN-D 24 HOUR [Suspect]
     Indication: NASAL CONGESTION
     Dosage: UNK, UNKNOWN
     Route: 048

REACTIONS (1)
  - INSOMNIA [None]
